FAERS Safety Report 25187714 (Version 1)
Quarter: 2025Q2

REPORT INFORMATION
  Report Type: Spontaneous
  Country: US (occurrence: US)
  Receive Date: 20250411
  Receipt Date: 20250411
  Transmission Date: 20250716
  Serious: No
  Sender: HIKMA
  Company Number: US-HIKMA PHARMACEUTICALS USA INC.-US-H14001-24-11559

PATIENT
  Sex: Male
  Weight: 92.971 kg

DRUGS (4)
  1. LENVIMA [Suspect]
     Active Substance: LENVATINIB
     Indication: Renal cancer
     Dosage: 1 DOSAGE FORM, BID
     Route: 048
     Dates: start: 20241018
  2. MORPHINE [Suspect]
     Active Substance: MORPHINE
     Indication: Product used for unknown indication
     Route: 065
  3. LEVOTHYROXINE [Concomitant]
     Active Substance: LEVOTHYROXINE
     Indication: Thyroid disorder
     Route: 065
  4. VICODIN [Concomitant]
     Active Substance: ACETAMINOPHEN\HYDROCODONE BITARTRATE
     Indication: Product used for unknown indication
     Route: 065

REACTIONS (9)
  - Brain fog [Unknown]
  - Speech disorder [Unknown]
  - Pain [Unknown]
  - Blood pressure abnormal [Recovered/Resolved]
  - Thyroid disorder [Unknown]
  - Dysstasia [Unknown]
  - Hypokinesia [Unknown]
  - Scratch [Unknown]
  - Dyspnoea [Unknown]
